FAERS Safety Report 6286365-7 (Version None)
Quarter: 2009Q3

REPORT INFORMATION
  Report Type: 
  Country: None (occurrence: None)
  Receive Date: 20090724
  Receipt Date: 20090710
  Transmission Date: 20100115
  Serious: Yes (Other)
  Sender: FDA-Public Use
  Company Number: 8037353

PATIENT
  Sex: Female
  Weight: 1.8 kg

DRUGS (6)
  1. KEPPRA [Suspect]
     Indication: COMPLEX PARTIAL SEIZURES
     Dosage: 750 MG 2/D TRP
     Route: 064
  2. LOVENOX [Concomitant]
  3. FOLIC ACID [Concomitant]
  4. AMOXICILLIN [Concomitant]
  5. FLEXERIL [Concomitant]
  6. TEGRETOL [Concomitant]

REACTIONS (3)
  - APGAR SCORE LOW [None]
  - MATERNAL DRUGS AFFECTING FOETUS [None]
  - SMALL FOR DATES BABY [None]
